FAERS Safety Report 4282423-7 (Version None)
Quarter: 2004Q1

REPORT INFORMATION
  Report Type: 
  Country: None (occurrence: None)
  Receive Date: 20040129
  Receipt Date: 20040115
  Transmission Date: 20041129
  Serious: Yes (Hospitalization, Other)
  Sender: FDA-Public Use
  Company Number: 2004003081

PATIENT
  Sex: 0

DRUGS (1)
  1. TROVAN [Suspect]
     Indication: ILL-DEFINED DISORDER

REACTIONS (1)
  - HEPATOTOXICITY [None]
